FAERS Safety Report 6104610-5 (Version None)
Quarter: 2009Q1

REPORT INFORMATION
  Report Type: 
  Country: None (occurrence: None)
  Receive Date: 20090305
  Receipt Date: 20090226
  Transmission Date: 20090719
  Serious: Yes (Hospitalization)
  Sender: FDA-Public Use
  Company Number: JP-ABBOTT-09P-087-0501747-00

PATIENT
  Sex: Male

DRUGS (2)
  1. LEUPROLIDE ACETATE [Suspect]
     Indication: PROSTATE CANCER
     Route: 058
     Dates: start: 20090105, end: 20090105
  2. OMEPRAL [Concomitant]
     Indication: PROPHYLAXIS
     Route: 048
     Dates: start: 20081107

REACTIONS (2)
  - PLATELET COUNT DECREASED [None]
  - WHITE BLOOD CELL COUNT DECREASED [None]
